FAERS Safety Report 7855896-8 (Version None)
Quarter: 2011Q4

REPORT INFORMATION
  Report Type: 
  Country: None (occurrence: None)
  Receive Date: 20111026
  Receipt Date: 20111011
  Transmission Date: 20120403
  Serious: Yes (Hospitalization)
  Sender: FDA-Public Use
  Company Number: US-GILEAD-2011-0040126

PATIENT
  Age: 42 Year
  Sex: Female

DRUGS (1)
  1. EMTRICITABINE/TENOFOVIR DISOPROXIL FUMARATE [Suspect]
     Dates: start: 20090709

REACTIONS (3)
  - BACK PAIN [None]
  - INGUINAL HERNIA [None]
  - UPPER RESPIRATORY TRACT INFECTION [None]
